FAERS Safety Report 25551703 (Version 1)
Quarter: 2025Q3

REPORT INFORMATION
  Report Type: Spontaneous
  Country: US (occurrence: US)
  Receive Date: 20250714
  Receipt Date: 20250714
  Transmission Date: 20251020
  Serious: Yes (Other)
  Sender: ELI LILLY AND COMPANY
  Company Number: US-ELI_LILLY_AND_COMPANY-US202507008195

PATIENT
  Age: 82 Year
  Sex: Male

DRUGS (4)
  1. KISUNLA [Suspect]
     Active Substance: DONANEMAB-AZBT
     Indication: Dementia Alzheimer^s type
     Route: 042
  2. KISUNLA [Suspect]
     Active Substance: DONANEMAB-AZBT
     Route: 042
  3. KISUNLA [Suspect]
     Active Substance: DONANEMAB-AZBT
     Route: 042
  4. KISUNLA [Suspect]
     Active Substance: DONANEMAB-AZBT
     Route: 042

REACTIONS (3)
  - Seizure [Recovered/Resolved]
  - Loss of consciousness [Recovered/Resolved]
  - Anaphylactic reaction [Recovered/Resolved]
